FAERS Safety Report 14089271 (Version 2)
Quarter: 2017Q4

REPORT INFORMATION
  Report Type: Report from Study
  Country: DO (occurrence: DO)
  Receive Date: 20171013
  Receipt Date: 20171031
  Transmission Date: 20180321
  Serious: Yes (Hospitalization)
  Sender: FDA-Public Use
  Company Number: PHHY2017DO148673

PATIENT
  Age: 14 Year
  Sex: Male

DRUGS (2)
  1. HYDROXYUREA. [Concomitant]
     Active Substance: HYDROXYUREA
     Indication: PRODUCT USED FOR UNKNOWN INDICATION
     Route: 065
  2. EXJADE [Suspect]
     Active Substance: DEFERASIROX
     Indication: SICKLE CELL ANAEMIA
     Dosage: 500 MG, QD
     Route: 048

REACTIONS (5)
  - Asthenia [Unknown]
  - Pain in extremity [Recovering/Resolving]
  - Cerebrovascular accident [Recovering/Resolving]
  - Hyperhidrosis [Unknown]
  - Syncope [Unknown]

NARRATIVE: CASE EVENT DATE: 20170928
